FAERS Safety Report 5280204-9 (Version None)
Quarter: 2007Q1

REPORT INFORMATION
  Report Type: 
  Country: None (occurrence: None)
  Receive Date: 20070326
  Receipt Date: 20070326
  Transmission Date: 20070707
  Serious: Yes (Hospitalization)
  Sender: FDA-Public Use
  Company Number: None

PATIENT
  Sex: Female
  Weight: 67.59 kg

DRUGS (4)
  1. TAXOL [Suspect]
     Indication: ENDOMETRIAL CANCER
  2. CISPLATIN (119875) [Suspect]
  3. DOXORUBICIN HYDROCHLORIDE [Suspect]
  4. G-CSF (FILGRASTIM, AMGEN)(614629) [Suspect]

REACTIONS (15)
  - BACK PAIN [None]
  - BREATH SOUNDS ABNORMAL [None]
  - DIZZINESS [None]
  - DRUG HYPERSENSITIVITY [None]
  - DYSPNOEA [None]
  - FATIGUE [None]
  - FLUSHING [None]
  - HYPERHIDROSIS [None]
  - HYPERTENSION [None]
  - HYPOXIA [None]
  - INFUSION RELATED REACTION [None]
  - INSOMNIA [None]
  - RESPIRATORY RATE INCREASED [None]
  - SYNCOPE [None]
  - VISUAL DISTURBANCE [None]
